FAERS Safety Report 4882105-4 (Version None)
Quarter: 2006Q1

REPORT INFORMATION
  Report Type: 
  Country: None (occurrence: None)
  Receive Date: 20060117
  Receipt Date: 20050801
  Transmission Date: 20060701
  Serious: Yes (Other)
  Sender: FDA-Public Use
  Company Number: US-MERCK-0508USA00853

PATIENT
  Sex: Female
  Weight: 61 kg

DRUGS (8)
  1. VIOXX [Suspect]
     Route: 048
     Dates: start: 20000901, end: 20021001
  2. VIOXX [Suspect]
     Route: 048
     Dates: start: 20000901, end: 20021001
  3. ZOLOFT [Concomitant]
     Route: 065
     Dates: start: 20010101
  4. PAXIL [Concomitant]
     Route: 065
     Dates: start: 20010101
  5. LAMISIL [Concomitant]
     Route: 065
     Dates: start: 20010101
  6. NYSTATIN [Concomitant]
     Route: 065
     Dates: start: 20010101
  7. HYDROCODONE HYDROCHLORIDE [Concomitant]
     Route: 065
     Dates: start: 20010101
  8. CEPHALEXIN [Concomitant]
     Route: 065
     Dates: start: 20010101

REACTIONS (3)
  - CARDIAC MURMUR [None]
  - CARDIOVASCULAR DISORDER [None]
  - PULMONARY EMBOLISM [None]
